FAERS Safety Report 23756800 (Version 2)
Quarter: 2024Q2

REPORT INFORMATION
  Report Type: Report from Study
  Country: EG (occurrence: EG)
  Receive Date: 20240418
  Receipt Date: 20240429
  Transmission Date: 20240716
  Serious: Yes (Other)
  Sender: FDA-Public Use
  Company Number: EG-SANDOZ-SDZ2024EG040030

PATIENT
  Sex: Female

DRUGS (1)
  1. OMNITROPE [Suspect]
     Active Substance: SOMATROPIN
     Indication: Growth hormone deficiency
     Dosage: 20 IU, QD (AS PER THE INSULIN SYRINGE SCALE) PER DAY AT THE BEDTIME,
     Route: 058
     Dates: start: 20230610

REACTIONS (2)
  - Wrong device used [Unknown]
  - Swelling [Unknown]
